FAERS Safety Report 25033724 (Version 1)
Quarter: 2025Q1

REPORT INFORMATION
  Report Type: Spontaneous
  Country: US (occurrence: US)
  Receive Date: 20250303
  Receipt Date: 20250303
  Transmission Date: 20250408
  Serious: No
  Sender: PURDUE
  Company Number: US-PURDUE PHARMA-USA-2025-0315751

PATIENT
  Sex: Female

DRUGS (2)
  1. OXYCODONE HYDROCHLORIDE [Suspect]
     Active Substance: OXYCODONE HYDROCHLORIDE
     Indication: Pain management
     Route: 065
  2. IBRANCE [Suspect]
     Active Substance: PALBOCICLIB
     Indication: Fibrosarcoma metastatic
     Dosage: TAKE 1 TABLET BY MOUTH DAILY ON DAY 1 THROUGH 21 OF 28 TREATMENT  CYCLE
     Route: 048

REACTIONS (12)
  - Distractibility [Unknown]
  - Memory impairment [Unknown]
  - Psychiatric symptom [Unknown]
  - Arthralgia [Unknown]
  - Decreased appetite [Unknown]
  - Fatigue [Unknown]
  - Dysphagia [Unknown]
  - Dry mouth [Unknown]
  - Constipation [Unknown]
  - Product dose omission issue [Unknown]
  - Inadequate analgesia [Unknown]
  - Unevaluable event [Unknown]
